FAERS Safety Report 13020431 (Version 1)
Quarter: 2016Q4

REPORT INFORMATION
  Report Type: Spontaneous
  Country: US (occurrence: US)
  Receive Date: 20161212
  Receipt Date: 20161212
  Transmission Date: 20170207
  Serious: Yes (Death, Other)
  Sender: FDA-Public Use
  Company Number: US-ALLERGAN-1679681US

PATIENT
  Age: 59 Year
  Sex: Female

DRUGS (1)
  1. BOTULINUM TOXIN TYPE A UNK [Suspect]
     Active Substance: BOTULINUM TOXIN TYPE A
     Indication: OESOPHAGEAL DISORDER
     Dosage: UNK, SINGLE
     Route: 030

REACTIONS (15)
  - Haematoma [Fatal]
  - Bacterial infection [Unknown]
  - Hyperhidrosis [Unknown]
  - Pyrexia [Unknown]
  - Nausea [Unknown]
  - Respiratory distress [Unknown]
  - Off label use [Unknown]
  - Aortic aneurysm rupture [Fatal]
  - Haemothorax [Fatal]
  - Vomiting [Unknown]
  - Suspiciousness [Unknown]
  - Back pain [Unknown]
  - Tachycardia [Unknown]
  - Hypotension [Unknown]
  - Abdominal pain upper [Unknown]
